FAERS Safety Report 10881415 (Version 1)
Quarter: 2015Q1

REPORT INFORMATION
  Report Type: Spontaneous
  Country: CA (occurrence: CA)
  Receive Date: 20150303
  Receipt Date: 20150303
  Transmission Date: 20150721
  Serious: Yes (Other)
  Sender: FDA-Public Use
  Company Number: CA-TEVA-544425ACC

PATIENT
  Age: 46 Year
  Sex: Female
  Weight: 53.12 kg

DRUGS (8)
  1. VITAMIN D [Concomitant]
     Active Substance: CHOLECALCIFEROL
     Dosage: UNKNOWN FORM OF STRENGTH
     Route: 065
  2. COQ 10 [Concomitant]
     Active Substance: UBIDECARENONE
     Dosage: UNKNOWN FORM OF STRENGTH
     Route: 065
  3. NOVO-KETOCONAZOLE [Suspect]
     Active Substance: KETOCONAZOLE
     Indication: PRODUCT USED FOR UNKNOWN INDICATION
     Dosage: 400 MILLIGRAM DAILY;
     Route: 048
  4. CITALOPRAM [Concomitant]
     Active Substance: CITALOPRAM HYDROBROMIDE
     Dosage: UNKNOWN FORM OF STRENGTH
     Route: 065
  5. NABILONE [Concomitant]
     Active Substance: NABILONE
     Dosage: UNKNOWN FORM OF STRENGTH
     Route: 065
  6. CHICORY [Concomitant]
     Dosage: UNKNOWN FORM OF STRENGTH
     Route: 065
  7. STRATTERA [Interacting]
     Active Substance: ATOMOXETINE HYDROCHLORIDE
     Indication: PRODUCT USED FOR UNKNOWN INDICATION
     Route: 048
  8. MAGNESIUM [Concomitant]
     Active Substance: MAGNESIUM
     Dosage: UNKNOWN FORM OF STRENGTH
     Route: 065

REACTIONS (11)
  - Disorientation [Unknown]
  - Drug interaction [Unknown]
  - Irritability [Unknown]
  - Suicidal behaviour [Unknown]
  - Confusional state [Unknown]
  - Lethargy [Unknown]
  - Somnolence [Unknown]
  - Mood swings [Unknown]
  - Nausea [Unknown]
  - Blood pressure increased [Unknown]
  - Memory impairment [Unknown]
